FAERS Safety Report 5269150-4 (Version None)
Quarter: 2007Q1

REPORT INFORMATION
  Report Type: 
  Country: None (occurrence: None)
  Receive Date: 20070319
  Receipt Date: 20070309
  Transmission Date: 20070707
  Serious: No
  Sender: FDA-Public Use
  Company Number: FR-BOEHRINGER INGELHEIM GMBH, GERMANY-2007-FF-00105FF

PATIENT
  Sex: Female
  Weight: 35 kg

DRUGS (2)
  1. SPIRIVA [Suspect]
     Indication: EMPHYSEMA
     Route: 055
     Dates: start: 20061001, end: 20061101
  2. SYMBICORT [Concomitant]
     Indication: EMPHYSEMA
     Route: 055
     Dates: start: 20061001

REACTIONS (4)
  - CHEST DISCOMFORT [None]
  - OVERDOSE [None]
  - PANIC DISORDER [None]
  - TACHYCARDIA [None]
